FAERS Safety Report 10065558 (Version 3)
Quarter: 2014Q2

REPORT INFORMATION
  Report Type: Report from Study
  Country: GB (occurrence: GB)
  Receive Date: 20140408
  Receipt Date: 20140428
  Transmission Date: 20141212
  Serious: Yes (Hospitalization)
  Sender: FDA-Public Use
  Company Number: GB-MPIJNJ-2014JNJ001084

PATIENT
  Sex: 0

DRUGS (9)
  1. VELCADE [Suspect]
     Indication: B-CELL LYMPHOMA
     Dosage: 2.5 MG, UNK
     Route: 065
     Dates: start: 20131224, end: 20140330
  2. RITUXIMAB [Suspect]
     Indication: B-CELL LYMPHOMA
     Dosage: 700 MG, UNK
     Route: 065
     Dates: start: 20131204, end: 20140330
  3. CYCLOPHOSPHAMIDE [Suspect]
     Indication: B-CELL LYMPHOMA
     Dosage: 1400 MG, UNK
     Route: 065
     Dates: start: 20131204, end: 20140330
  4. VINCRISTINE [Suspect]
     Indication: B-CELL LYMPHOMA
     Dosage: 2 MG, UNK
     Route: 065
     Dates: start: 20131204, end: 20140330
  5. DOXORUBICIN [Suspect]
     Indication: B-CELL LYMPHOMA
     Dosage: 100 MG, UNK
     Route: 065
     Dates: start: 20131204, end: 20140330
  6. PREDNISOLONE [Suspect]
     Indication: B-CELL LYMPHOMA
     Dosage: 100 MG, UNK
     Route: 065
     Dates: end: 20140330
  7. METHOTREXATE [Concomitant]
     Dosage: 12.5 G, UNK
     Dates: start: 20140320, end: 20140320
  8. PLAQUENIL                          /00072602/ [Concomitant]
     Dosage: UNK
     Route: 048
     Dates: start: 2011
  9. OMEPRAZOLE [Concomitant]
     Dosage: UNK
     Route: 048
     Dates: start: 2005

REACTIONS (1)
  - Neutropenia [Recovered/Resolved]
